FAERS Safety Report 5777422-X (Version None)
Quarter: 2008Q2

REPORT INFORMATION
  Report Type: 
  Country: None (occurrence: None)
  Receive Date: 20080616
  Receipt Date: 20080530
  Transmission Date: 20081010
  Serious: Yes (Other)
  Sender: FDA-Public Use
  Company Number: 231557J08USA

PATIENT
  Age: 57 Year
  Sex: Female
  Weight: 111.1313 kg

DRUGS (7)
  1. REBIF [Suspect]
     Indication: MULTIPLE SCLEROSIS
     Dosage: 44 MCG, 3 IN 1 WEEKS, SUBCUTANEOUS
     Route: 058
     Dates: start: 20050421
  2. THEO-DUR [Concomitant]
  3. SINGULAIR [Concomitant]
  4. CLARINEX [Concomitant]
  5. ADVAIR (SERETIDE) [Concomitant]
  6. UNSPECIFIED WATER PILL (DIURETICS) [Concomitant]
  7. NORVASC [Concomitant]

REACTIONS (2)
  - GENITAL DISORDER FEMALE [None]
  - VAGINAL HAEMORRHAGE [None]
